FAERS Safety Report 18233679 (Version 1)
Quarter: 2020Q3

REPORT INFORMATION
  Report Type: Spontaneous
  Country: US (occurrence: US)
  Receive Date: 20200904
  Receipt Date: 20200904
  Transmission Date: 20201103
  Serious: Yes (Death)
  Sender: FDA-Public Use
  Company Number: None

PATIENT
  Age: 78 Year
  Sex: Male
  Weight: 89 kg

DRUGS (5)
  1. AZITHROMYCIN (AZITHROMYCIN 500MG/VIL INJ) [Suspect]
     Active Substance: AZITHROMYCIN
     Indication: UPPER RESPIRATORY TRACT INFECTION
     Route: 042
     Dates: start: 20200511, end: 20200511
  2. AZITHROMYCIN (AZITHROMYCIN 500MG/VIL INJ) [Suspect]
     Active Substance: AZITHROMYCIN
     Indication: COVID-19
  3. REMDESIVIR (EUA) (REMDESIVIR (EUA)) [Suspect]
     Active Substance: REMDESIVIR
     Indication: ATRIAL FIBRILLATION
  4. REMDESIVIR (EUA) (REMDESIVIR (EUA)) [Suspect]
     Active Substance: REMDESIVIR
     Indication: COVID-19
  5. REMDESIVIR (EUA) (REMDESIVIR (EUA)) [Suspect]
     Active Substance: REMDESIVIR
     Indication: HEPATITIS C
     Route: 042
     Dates: start: 20200516, end: 20200516

REACTIONS (4)
  - Disorientation [None]
  - Unresponsive to stimuli [None]
  - Pneumonia legionella [None]
  - Respiratory arrest [None]

NARRATIVE: CASE EVENT DATE: 20200518
